FAERS Safety Report 17008851 (Version 4)
Quarter: 2019Q4

REPORT INFORMATION
  Report Type: Spontaneous
  Country: US (occurrence: US)
  Receive Date: 20191108
  Receipt Date: 20191219
  Transmission Date: 20200122
  Serious: Yes (Other)
  Sender: FDA-Public Use
  Company Number: US-SUNOVION-2019SUN004797

PATIENT
  Age: 26 Year
  Sex: Female
  Weight: 73.47 kg

DRUGS (3)
  1. LATUDA [Suspect]
     Active Substance: LURASIDONE HYDROCHLORIDE
     Dosage: 120 MG, QD
     Route: 048
     Dates: start: 20191002
  2. LATUDA [Suspect]
     Active Substance: LURASIDONE HYDROCHLORIDE
     Indication: BIPOLAR II DISORDER
     Dosage: 80 MG, QD
     Route: 048
     Dates: start: 20190613, end: 20191002
  3. ABILIFY [Concomitant]
     Active Substance: ARIPIPRAZOLE
     Indication: BIPOLAR II DISORDER
     Dosage: 15 MG
     Dates: start: 20161011, end: 20190815

REACTIONS (6)
  - Euphoric mood [Not Recovered/Not Resolved]
  - Off label use [Unknown]
  - Feeling abnormal [Unknown]
  - Therapy cessation [Unknown]
  - Psychotic disorder [Not Recovered/Not Resolved]
  - Mania [Not Recovered/Not Resolved]

NARRATIVE: CASE EVENT DATE: 20191107
